FAERS Safety Report 22168500 (Version 1)
Quarter: 2023Q2

REPORT INFORMATION
  Report Type: Spontaneous
  Country: US (occurrence: US)
  Receive Date: 20230403
  Receipt Date: 20230403
  Transmission Date: 20230722
  Serious: No
  Sender: FDA-Public Use
  Company Number: US-002147023-NVSC2023US076803

PATIENT
  Age: 65 Year
  Sex: Male
  Weight: 87.09 kg

DRUGS (1)
  1. LEQVIO [Suspect]
     Active Substance: INCLISIRAN SODIUM
     Indication: Low density lipoprotein increased
     Dosage: 284 ML, OTHER, MONTH 0, MONTH 3, EVERY 6 MONTHS THEREAFTER, LIQUID
     Route: 058
     Dates: start: 20220701, end: 20221001

REACTIONS (1)
  - Low density lipoprotein increased [Not Recovered/Not Resolved]

NARRATIVE: CASE EVENT DATE: 20220701
